FAERS Safety Report 9860951 (Version 2)
Quarter: 2014Q1

REPORT INFORMATION
  Report Type: Spontaneous
  Country: US (occurrence: US)
  Receive Date: 20140202
  Receipt Date: 20140202
  Transmission Date: 20141002
  Serious: Yes (Hospitalization)
  Sender: FDA-Public Use
  Company Number: US-ALLERGAN-1302705US

PATIENT
  Age: 76 Year
  Sex: Female

DRUGS (8)
  1. BOTOX COSMETIC [Suspect]
     Indication: SKIN WRINKLING
     Dosage: 41 UNITS, SINGLE
     Route: 030
     Dates: start: 20130131, end: 20130131
  2. BOTOX COSMETIC [Suspect]
     Indication: SKIN WRINKLING
  3. BOTOX COSMETIC [Suspect]
     Indication: SKIN WRINKLING
  4. COUMADIN                           /00014802/ [Concomitant]
     Indication: THROMBOSIS
     Dosage: UNK
     Dates: start: 2008
  5. ZYRTEC                             /00884302/ [Concomitant]
     Indication: PRODUCT USED FOR UNKNOWN INDICATION
  6. COZAAR [Concomitant]
     Indication: PRODUCT USED FOR UNKNOWN INDICATION
  7. ZANTAC                             /00550801/ [Concomitant]
     Indication: PRODUCT USED FOR UNKNOWN INDICATION
  8. HYDROCHLOROTHIAZIDE [Concomitant]
     Indication: HYPERTENSION
     Dosage: UNK
     Dates: start: 2013

REACTIONS (4)
  - Dyspnoea [Recovered/Resolved]
  - Fatigue [Unknown]
  - Syncope [Recovering/Resolving]
  - Hypersensitivity [Unknown]
